FAERS Safety Report 25839418 (Version 1)
Quarter: 2025Q3

REPORT INFORMATION
  Report Type: Spontaneous
  Country: US (occurrence: US)
  Receive Date: 20250924
  Receipt Date: 20250924
  Transmission Date: 20251021
  Serious: Yes (Other)
  Sender: Haleon PLC
  Company Number: US-HALEON-2264124

PATIENT
  Age: 86 Year
  Sex: Male

DRUGS (1)
  1. ADVIL PM (DIPHENHYDRAMINE HYDROCHLORIDE\IBUPROFEN) [Suspect]
     Active Substance: DIPHENHYDRAMINE HYDROCHLORIDE\IBUPROFEN
     Indication: Product used for unknown indication
     Dates: start: 20250911, end: 20250921

REACTIONS (3)
  - Foreign body in throat [Unknown]
  - Throat irritation [Unknown]
  - Choking [Unknown]

NARRATIVE: CASE EVENT DATE: 20250911
